FAERS Safety Report 9188359 (Version 2)
Quarter: 2013Q2

REPORT INFORMATION
  Report Type: Spontaneous
  Country: US (occurrence: US)
  Receive Date: 20130325
  Receipt Date: 20130411
  Transmission Date: 20140414
  Serious: Yes (Other)
  Sender: FDA-Public Use
  Company Number: US-PFIZER INC-2013092470

PATIENT
  Age: 69 Year
  Sex: Female
  Weight: 59.86 kg

DRUGS (4)
  1. SILDENAFIL CITRATE [Suspect]
     Indication: PULMONARY HYPERTENSION
     Dosage: 20 MG, 3X/DAY
     Route: 048
     Dates: start: 201303, end: 201303
  2. SYNTHROID [Concomitant]
     Dosage: UNK
  3. ZYLOPRIM [Concomitant]
     Dosage: UNK
  4. TRICOR [Concomitant]
     Dosage: UNK

REACTIONS (5)
  - Diarrhoea [Unknown]
  - Dehydration [Unknown]
  - Full blood count decreased [Unknown]
  - Blood cholesterol increased [Unknown]
  - Blood triglycerides increased [Unknown]
